FAERS Safety Report 9861836 (Version 1)
Quarter: 2014Q1

REPORT INFORMATION
  Report Type: Spontaneous
  Country: US (occurrence: US)
  Receive Date: 20140203
  Receipt Date: 20140203
  Transmission Date: 20141002
  Serious: No
  Sender: FDA-Public Use
  Company Number: US-PFIZER INC-2014027954

PATIENT
  Age: 41 Year
  Sex: Female
  Weight: 68.03 kg

DRUGS (5)
  1. MORPHINE SULFATE [Suspect]
     Dosage: UNK
     Dates: start: 2013, end: 2013
  2. ANDROCUR [Concomitant]
     Dosage: UNK
  3. BUSPAR [Concomitant]
     Dosage: UNK
  4. FLEXERIL [Concomitant]
     Dosage: UNK
  5. DEPAKOTE [Concomitant]
     Dosage: UNK

REACTIONS (3)
  - Nausea [Unknown]
  - Vomiting [Unknown]
  - Drug ineffective [Unknown]
